FAERS Safety Report 17479943 (Version 1)
Quarter: 2020Q1

REPORT INFORMATION
  Report Type: Report from Study
  Country: ZA (occurrence: ZA)
  Receive Date: 20200228
  Receipt Date: 20200228
  Transmission Date: 20200409
  Serious: Yes (Hospitalization, Other)
  Sender: FDA-Public Use
  Company Number: NVSC2019ZA087427

PATIENT
  Age: 44 Year
  Sex: Male

DRUGS (1)
  1. ENALAPRIL [Suspect]
     Active Substance: ENALAPRIL
     Indication: CARDIAC FAILURE
     Dosage: 10 MG, BID
     Route: 048

REACTIONS (11)
  - Orthopnoea [Unknown]
  - Cardiac failure [Unknown]
  - Ejection fraction decreased [Unknown]
  - Ischaemic cardiomyopathy [Unknown]
  - Blood pressure increased [Unknown]
  - N-terminal prohormone brain natriuretic peptide increased [Unknown]
  - Pneumonia [Unknown]
  - Fatigue [Unknown]
  - Cardiac failure chronic [Unknown]
  - Gait disturbance [Unknown]
  - Pulmonary oedema [Unknown]

NARRATIVE: CASE EVENT DATE: 2018
